FAERS Safety Report 4610075-2 (Version None)
Quarter: 2005Q1

REPORT INFORMATION
  Report Type: 
  Country: None (occurrence: None)
  Receive Date: 20050316
  Receipt Date: 20050304
  Transmission Date: 20050727
  Serious: Yes (Other)
  Sender: FDA-Public Use
  Company Number: PHNU2005HU01347

PATIENT
  Sex: Female
  Weight: 67 kg

DRUGS (9)
  1. HALDOL [Suspect]
     Dosage: 20 MG/DAY
     Route: 048
     Dates: start: 20040810, end: 20040928
  2. SEROPRAM [Concomitant]
     Dosage: 40 MG/DAY
     Route: 048
     Dates: start: 20040810, end: 20040928
  3. SEROPRAM [Concomitant]
     Dosage: 40 MG/DAY
     Route: 048
     Dates: start: 20040101
  4. RIVOTRIL [Concomitant]
     Dosage: 4 MG/DAY
     Route: 048
     Dates: start: 20040810, end: 20040928
  5. RIVOTRIL [Concomitant]
     Dosage: 4 MG/DAY
     Route: 048
     Dates: start: 20040101
  6. LITHIUM CARBONATE [Concomitant]
     Dosage: 1000 MG/DAY
     Route: 048
     Dates: start: 20040810, end: 20040928
  7. LITHIUM CARBONATE [Concomitant]
     Dosage: 1000 MG/DAY
     Route: 048
     Dates: start: 20040101
  8. TEGRETOL [Suspect]
     Indication: SCHIZOAFFECTIVE DISORDER
     Dosage: 200 MG/DAY
     Route: 048
     Dates: start: 20040810, end: 20040928
  9. TEGRETOL [Suspect]
     Dosage: 200 MG/DAY
     Route: 048
     Dates: start: 20040101

REACTIONS (7)
  - ABDOMINAL PAIN [None]
  - BLOOD SODIUM DECREASED [None]
  - BODY TEMPERATURE INCREASED [None]
  - BOWEL SOUNDS ABNORMAL [None]
  - CONSTIPATION [None]
  - ILEUS [None]
  - WEIGHT DECREASED [None]
